FAERS Safety Report 7444625-8 (Version None)
Quarter: 2011Q2

REPORT INFORMATION
  Report Type: 
  Country: None (occurrence: None)
  Receive Date: 20110429
  Receipt Date: 20110426
  Transmission Date: 20111010
  Serious: Yes (Other)
  Sender: FDA-Public Use
  Company Number: US-PFIZER INC-2010113712

PATIENT
  Sex: Male
  Weight: 86.2 kg

DRUGS (4)
  1. CHANTIX [Suspect]
     Indication: SMOKING CESSATION THERAPY
     Dosage: 0.5 MG, 1X/DAY FOR 3 DAYS
     Route: 048
     Dates: start: 20090709, end: 20090711
  2. CHANTIX [Suspect]
     Dosage: 1 MG, 2X/DAY
     Route: 048
     Dates: start: 20090716, end: 20090901
  3. AMBIEN [Suspect]
     Indication: INSOMNIA
     Dosage: UNK
     Dates: start: 20091215
  4. CHANTIX [Suspect]
     Dosage: 0.5 MG, 2X/DAY FOR 4 DAYS
     Route: 048
     Dates: start: 20090712, end: 20090715

REACTIONS (7)
  - SLEEP DISORDER [None]
  - ANXIETY [None]
  - PANIC ATTACK [None]
  - DISTURBANCE IN ATTENTION [None]
  - DEPRESSION [None]
  - HEADACHE [None]
  - WEIGHT DECREASED [None]
